FAERS Safety Report 23690763 (Version 1)
Quarter: 2024Q2

REPORT INFORMATION
  Report Type: Spontaneous
  Country: CN (occurrence: CN)
  Receive Date: 20240401
  Receipt Date: 20240401
  Transmission Date: 20240717
  Serious: Yes (Other)
  Sender: FDA-Public Use
  Company Number: CN-002147023-NVSC2024CN068265

PATIENT
  Age: 24 Year
  Sex: Female
  Weight: 49.4 kg

DRUGS (4)
  1. ENTRESTO [Suspect]
     Active Substance: SACUBITRIL\VALSARTAN
     Indication: Renal hypertension
     Dosage: 200.000 MG, QD
     Route: 048
     Dates: start: 20240314, end: 20240321
  2. JIN LUO [Concomitant]
     Indication: Renal hypertension
     Dosage: 10.000 MG, BID
     Route: 048
     Dates: start: 20240314, end: 20240327
  3. NIFEDIPINE [Concomitant]
     Active Substance: NIFEDIPINE
     Indication: Renal hypertension
     Dosage: 30 MG, BID CONTROLLED-RELEASE TABLETS
     Route: 048
  4. NIFEDIPINE [Concomitant]
     Active Substance: NIFEDIPINE
     Dosage: 20 MG, BID SUSTAINED RELEASE TABLETS
     Route: 065

REACTIONS (3)
  - Laryngeal oedema [Recovering/Resolving]
  - Eyelid oedema [Recovering/Resolving]
  - Laryngeal discomfort [Recovering/Resolving]

NARRATIVE: CASE EVENT DATE: 20240321
